FAERS Safety Report 8813088 (Version 1)
Quarter: 2012Q4

REPORT INFORMATION
  Report Type: 
  Country: US (occurrence: US)
  Receive Date: 20120927
  Receipt Date: 20120927
  Transmission Date: 20130627
  Serious: No
  Sender: FDA-Public Use
  Company Number: US-AMGEN-USASP2012053184

PATIENT
  Age: 74 Year
  Sex: Female
  Weight: 50 kg

DRUGS (4)
  1. PROLIA [Suspect]
     Indication: OSTEOPOROSIS POSTMENOPAUSAL
     Dosage: 60 mg, q6mo
     Route: 058
     Dates: start: 20111118
  2. PROLIA [Suspect]
     Dosage: 60 mg, q6mo
     Route: 058
     Dates: start: 20120608
  3. CALCIUM [Concomitant]
     Dosage: UNK
  4. VITAMIN D [Concomitant]
     Dosage: UNK

REACTIONS (2)
  - Muscular weakness [Not Recovered/Not Resolved]
  - Musculoskeletal pain [Unknown]
